FAERS Safety Report 25900635 (Version 4)
Quarter: 2025Q4

REPORT INFORMATION
  Report Type: Report from Study
  Country: US (occurrence: US)
  Receive Date: 20251009
  Receipt Date: 20251229
  Transmission Date: 20260118
  Serious: No
  Sender: DECIPHERA PHARMACEUTICALS
  Company Number: US-DECIPHERA PHARMACEUTICALS LLC-2025US001162

PATIENT
  Age: 67 Year
  Sex: Male

DRUGS (2)
  1. QINLOCK [Suspect]
     Active Substance: RIPRETINIB
     Indication: Gastrointestinal stromal tumour
     Dosage: 50 MILLIGRAM, QD
     Dates: start: 20250825, end: 2025
  2. QINLOCK [Suspect]
     Active Substance: RIPRETINIB
     Dosage: 150 MILLIGRAM, QD (50 MG 3 TABLETS ONCE DAILY)
     Route: 061
     Dates: start: 2025

REACTIONS (10)
  - Paraesthesia [Recovering/Resolving]
  - Skin hypertrophy [Unknown]
  - Scrotal injury [Unknown]
  - Hypoaesthesia [Not Recovered/Not Resolved]
  - Musculoskeletal stiffness [Unknown]
  - Pruritus genital [Unknown]
  - Genital rash [Unknown]
  - Asthenia [Unknown]
  - Prescribed underdose [Unknown]
  - Product dose omission in error [Unknown]

NARRATIVE: CASE EVENT DATE: 20250101
